FAERS Safety Report 10616201 (Version 1)
Quarter: 2014Q4

REPORT INFORMATION
  Report Type: Spontaneous
  Country: US (occurrence: None)
  Receive Date: 20141126
  Receipt Date: 20141126
  Transmission Date: 20150529
  Serious: Yes (Other)
  Sender: FDA-Public Use
  Company Number: None

PATIENT
  Age: 30 Year
  Sex: Male
  Weight: 58.51 kg

DRUGS (6)
  1. NORVIR [Concomitant]
     Active Substance: RITONAVIR
  2. TRUVADA [Suspect]
     Active Substance: EMTRICITABINE\TENOFOVIR DISOPROXIL FUMARATE
     Indication: HIV INFECTION
     Dosage: 1 TABLET QD ORAL
     Route: 048
     Dates: start: 20141103, end: 20141121
  3. RIFABUTIN. [Concomitant]
     Active Substance: RIFABUTIN
  4. IBUPROFEN. [Concomitant]
     Active Substance: IBUPROFEN
  5. PREZISTA [Suspect]
     Active Substance: DARUNAVIR ETHANOLATE
     Indication: HIV INFECTION
     Dosage: 1 TABLET QD ORAL
     Route: 048
     Dates: start: 20141103, end: 20141121
  6. BACTRIM DS [Concomitant]
     Active Substance: SULFAMETHOXAZOLE\TRIMETHOPRIM

REACTIONS (2)
  - Eye pain [None]
  - Facial pain [None]

NARRATIVE: CASE EVENT DATE: 20141121
